FAERS Safety Report 5599229-9 (Version None)
Quarter: 2008Q1

REPORT INFORMATION
  Report Type: 
  Country: None (occurrence: None)
  Receive Date: 20080117
  Receipt Date: 20080114
  Transmission Date: 20080703
  Serious: Yes (Other)
  Sender: FDA-Public Use
  Company Number: A0703116A

PATIENT
  Age: 79 Year
  Sex: Male

DRUGS (1)
  1. UREA PEROXIDE [Suspect]
     Indication: CERUMEN REMOVAL
     Dosage: SEE DOSAGE TEXT, EAR DROPS
     Route: 001
     Dates: start: 20080111

REACTIONS (2)
  - CERUMEN IMPACTION [None]
  - DEAFNESS UNILATERAL [None]
